FAERS Safety Report 9605278 (Version 3)
Quarter: 2013Q4

REPORT INFORMATION
  Report Type: Report from Study
  Country: CA (occurrence: CA)
  Receive Date: 20131008
  Receipt Date: 20131203
  Transmission Date: 20140711
  Serious: Yes (Other)
  Sender: FDA-Public Use
  Company Number: PHHY2013CA076812

PATIENT
  Sex: Female

DRUGS (3)
  1. GLEEVEC [Suspect]
     Indication: CHRONIC MYELOID LEUKAEMIA
     Dosage: 400 MG, QD
     Route: 048
  2. GLEEVEC [Suspect]
     Dosage: 300 MG, QD
     Route: 048
     Dates: start: 2011
  3. FOSAVANCE [Suspect]
     Dosage: UNK UKN, UNK

REACTIONS (11)
  - Osteoporosis [Unknown]
  - Nasal disorder [Unknown]
  - Vision blurred [Unknown]
  - Myalgia [Unknown]
  - Muscle spasms [Unknown]
  - Mobility decreased [Unknown]
  - Nausea [Unknown]
  - Photosensitivity reaction [Unknown]
  - Headache [Unknown]
  - Blood pressure abnormal [Unknown]
  - Weight increased [Unknown]
